FAERS Safety Report 17899263 (Version 2)
Quarter: 2020Q3

REPORT INFORMATION
  Report Type: Report from Study
  Country: None (occurrence: US)
  Receive Date: 20200615
  Receipt Date: 20200803
  Transmission Date: 20201103
  Serious: Yes (Other)
  Sender: FDA-Public Use
  Company Number: US-ABBVIE-20K-163-3312279-00

PATIENT
  Age: 54 Year
  Sex: Female
  Weight: 88.53 kg

DRUGS (1)
  1. HUMIRA [Suspect]
     Active Substance: ADALIMUMAB
     Indication: COLITIS ULCERATIVE
     Dosage: CITRATE FREE
     Route: 058
     Dates: start: 20200328, end: 2020

REACTIONS (16)
  - Pyrexia [Recovering/Resolving]
  - Nausea [Unknown]
  - Joint dislocation [Unknown]
  - Unevaluable event [Unknown]
  - Somnolence [Unknown]
  - Fear of disease [Unknown]
  - Gait inability [Unknown]
  - Foot fracture [Unknown]
  - Chills [Unknown]
  - Nightmare [Unknown]
  - Migraine [Not Recovered/Not Resolved]
  - Upper respiratory tract infection [Not Recovered/Not Resolved]
  - Diarrhoea [Recovering/Resolving]
  - Illness [Not Recovered/Not Resolved]
  - Loss of consciousness [Recovered/Resolved]
  - Abdominal pain upper [Recovering/Resolving]

NARRATIVE: CASE EVENT DATE: 2020
